FAERS Safety Report 9759554 (Version 1)
Quarter: 2013Q4

REPORT INFORMATION
  Report Type: Spontaneous
  Country: US (occurrence: None)
  Receive Date: 20131212
  Receipt Date: 20131212
  Transmission Date: 20140711
  Serious: Yes (Hospitalization)
  Sender: FDA-Public Use
  Company Number: 2013-003826

PATIENT
  Age: 24 Year
  Sex: Female

DRUGS (1)
  1. LO LOESTRIN FE (NORETHINDRONE ACETATE, ETHINYLESTRADIOL, FERROUS FUMARATE) TABLET, 1000/10UG [Suspect]
     Indication: CONTRACEPTION
     Route: 048
     Dates: start: 201210

REACTIONS (7)
  - Convulsion [None]
  - Aphasia [None]
  - Dysphonia [None]
  - Feeling abnormal [None]
  - Menstruation irregular [None]
  - Amenorrhoea [None]
  - Aphasia [None]
